FAERS Safety Report 7661965-8 (Version None)
Quarter: 2011Q3

REPORT INFORMATION
  Report Type: 
  Country: None (occurrence: None)
  Receive Date: 20110805
  Receipt Date: 20101203
  Transmission Date: 20111222
  Serious: No
  Sender: FDA-Public Use
  Company Number: US-ABBOTT-10P-163-0689867-00

PATIENT
  Sex: Male
  Weight: 74.91 kg

DRUGS (8)
  1. OMEPRAZOLE [Concomitant]
     Indication: GASTROOESOPHAGEAL REFLUX DISEASE
  2. CALCIUM ACETATE [Concomitant]
     Indication: PRODUCT USED FOR UNKNOWN INDICATION
  3. VITAMIN D [Concomitant]
     Indication: PRODUCT USED FOR UNKNOWN INDICATION
  4. SIMVASTATIN [Concomitant]
     Indication: PRODUCT USED FOR UNKNOWN INDICATION
  5. DESONIDE [Concomitant]
     Indication: RASH
  6. NIASPAN [Suspect]
     Indication: BLOOD CHOLESTEROL INCREASED
     Dosage: EVERY NIGHT
     Dates: start: 20100901
  7. ELIGARD [Concomitant]
     Indication: PROSTATE CANCER
     Route: 050
  8. JANTOVEN [Concomitant]
     Indication: THROMBOSIS PROPHYLAXIS

REACTIONS (4)
  - INSOMNIA [None]
  - PRURITUS [None]
  - RASH PAPULAR [None]
  - RASH PRURITIC [None]
